FAERS Safety Report 10019548 (Version 1)
Quarter: 2014Q1

REPORT INFORMATION
  Report Type: Spontaneous
  Country: US (occurrence: US)
  Receive Date: 20140318
  Receipt Date: 20140318
  Transmission Date: 20141002
  Serious: No
  Sender: FDA-Public Use
  Company Number: US-BAUSCH-BL-2013-003526

PATIENT
  Sex: Male

DRUGS (1)
  1. NEOMYCIN AND POLYMYXIN B SULFATES AND GRAMICIDIN OPHTHALMIC SOLUTION U [Suspect]
     Indication: PRODUCT USED FOR UNKNOWN INDICATION
     Dosage: 1 TO 2 DROPS IN EACH EYE; THREE TIMES DAILY; OPHTHALMIC
     Route: 047
     Dates: start: 20130509, end: 20130518

REACTIONS (2)
  - Expired drug administered [Recovered/Resolved]
  - Eye pruritus [Recovered/Resolved]
